FAERS Safety Report 6124554-2 (Version None)
Quarter: 2009Q1

REPORT INFORMATION
  Report Type: 
  Country: None (occurrence: None)
  Receive Date: 20090317
  Receipt Date: 20090317
  Transmission Date: 20090719
  Serious: Yes (Other)
  Sender: FDA-Public Use
  Company Number: None

PATIENT
  Sex: Female
  Weight: 64.8644 kg

DRUGS (1)
  1. PLAVIX [Suspect]
     Indication: CORONARY ARTERY DISEASE
     Dosage: 1 DAILY PO
     Route: 048
     Dates: start: 20080331, end: 20081222

REACTIONS (4)
  - ARTHRALGIA [None]
  - DECREASED ACTIVITY [None]
  - GAIT DISTURBANCE [None]
  - PAIN IN EXTREMITY [None]
